FAERS Safety Report 4317153-6 (Version None)
Quarter: 2004Q1

REPORT INFORMATION
  Report Type: 
  Country: None (occurrence: None)
  Receive Date: 20040312
  Receipt Date: 20040302
  Transmission Date: 20041129
  Serious: Yes (Death)
  Sender: FDA-Public Use
  Company Number: ZONI001342

PATIENT
  Age: 79 Year
  Sex: Male

DRUGS (3)
  1. EXCEGRAN (ZONISAMIDE) [Suspect]
     Indication: CONVULSION PROPHYLAXIS
     Dosage: 200 MG DAILY ORAL
     Route: 048
     Dates: start: 20031002, end: 20031020
  2. ISOSORBIDE MONONITRATE [Concomitant]
  3. BAYASPIRINA (ACETYLSALICYLIC ACID) [Concomitant]

REACTIONS (6)
  - ESCHERICHIA BACTERAEMIA [None]
  - NEUTROPHIL PERCENTAGE DECREASED [None]
  - PNEUMONIA [None]
  - PYREXIA [None]
  - RASH ERYTHEMATOUS [None]
  - WHITE BLOOD CELL COUNT DECREASED [None]
